FAERS Safety Report 5573687-8 (Version None)
Quarter: 2007Q4

REPORT INFORMATION
  Report Type: 
  Country: None (occurrence: None)
  Receive Date: 20071226
  Receipt Date: 20071220
  Transmission Date: 20080405
  Serious: Yes (Other)
  Sender: FDA-Public Use
  Company Number: JP-WYE-H01858007

PATIENT
  Sex: Female
  Weight: 46 kg

DRUGS (9)
  1. MYLOTARG [Suspect]
     Indication: ACUTE MYELOID LEUKAEMIA
     Route: 041
     Dates: start: 20070320, end: 20070320
  2. MYLOTARG [Suspect]
     Route: 041
     Dates: start: 20070627, end: 20070627
  3. SELBEX [Concomitant]
     Indication: PROPHYLAXIS
     Route: 048
     Dates: start: 20070115
  4. URSO 250 [Concomitant]
     Indication: PROPHYLAXIS
     Route: 048
     Dates: start: 20070319
  5. GASTER [Concomitant]
     Indication: PROPHYLAXIS
     Route: 048
     Dates: start: 20070319
  6. CRAVIT [Concomitant]
     Indication: PROPHYLAXIS
     Route: 048
     Dates: start: 20070320, end: 20070402
  7. FIRSTCIN [Concomitant]
     Route: 041
     Dates: start: 20070403, end: 20070405
  8. BAKTAR [Concomitant]
     Indication: PROPHYLAXIS
     Route: 048
     Dates: start: 20070110
  9. BIO THREE [Concomitant]
     Indication: PROPHYLAXIS
     Dosage: 3 DOSE FORM
     Route: 048
     Dates: start: 20070110

REACTIONS (9)
  - ALANINE AMINOTRANSFERASE INCREASED [None]
  - ASPARTATE AMINOTRANSFERASE INCREASED [None]
  - FEBRILE NEUTROPENIA [None]
  - HYPONATRAEMIA [None]
  - LEUKOPENIA [None]
  - LIVER DISORDER [None]
  - NEUTROPHIL COUNT DECREASED [None]
  - PLATELET COUNT DECREASED [None]
  - WHITE BLOOD CELL COUNT DECREASED [None]
